FAERS Safety Report 5934949-5 (Version None)
Quarter: 2008Q4

REPORT INFORMATION
  Report Type: 
  Country: None (occurrence: None)
  Receive Date: 20081028
  Receipt Date: 20081014
  Transmission Date: 20090506
  Serious: Yes (Other)
  Sender: FDA-Public Use
  Company Number: 2008S1016357

PATIENT
  Age: 28 Year
  Sex: Female

DRUGS (2)
  1. AMNESTEEM [Suspect]
     Dosage: 60 MG; DAILY; ORAL
     Route: 048
     Dates: end: 20080801
  2. CLARAVIS [Suspect]
     Dosage: 60 MG; DAILY; ORAL
     Route: 048
     Dates: start: 20080603

REACTIONS (3)
  - ABORTION INDUCED [None]
  - DRUG EXPOSURE DURING PREGNANCY [None]
  - TREATMENT NONCOMPLIANCE [None]
